FAERS Safety Report 6634239-1 (Version None)
Quarter: 2010Q1

REPORT INFORMATION
  Report Type: 
  Country: None (occurrence: None)
  Receive Date: 20100315
  Receipt Date: 20100303
  Transmission Date: 20100710
  Serious: Yes (Other)
  Sender: FDA-Public Use
  Company Number: PHEH2010US02901

PATIENT
  Age: 48 Year

DRUGS (1)
  1. FOCALIN XR [Suspect]

REACTIONS (1)
  - BLINDNESS [None]
